FAERS Safety Report 22660864 (Version 3)
Quarter: 2023Q4

REPORT INFORMATION
  Report Type: Spontaneous
  Country: JP (occurrence: JP)
  Receive Date: 20230630
  Receipt Date: 20231006
  Transmission Date: 20240110
  Serious: Yes (Life-Threatening, Other)
  Sender: FDA-Public Use
  Company Number: JP-SUNPHARMA-2023R1-395273AA

PATIENT
  Age: 81 Year
  Sex: Female
  Weight: 53.8 kg

DRUGS (8)
  1. ILUMYA [Suspect]
     Active Substance: TILDRAKIZUMAB-ASMN
     Indication: Psoriasis
     Dosage: 100 MILLIGRAM, 1DOSE/MONTH
     Route: 058
     Dates: start: 20230210, end: 20230310
  2. ELDECALCITOL [Concomitant]
     Active Substance: ELDECALCITOL
     Indication: Osteoporosis
     Dosage: 0.75 MICROGRAM, QD
     Route: 048
  3. ESOMEPRAZOLE [Concomitant]
     Active Substance: ESOMEPRAZOLE
     Indication: Gastritis
     Dosage: 20 MILLIGRAM, QD
     Route: 048
  4. ENTRESTO [Concomitant]
     Active Substance: SACUBITRIL\VALSARTAN
     Indication: Hypertension
     Dosage: 200 MILLIGRAM, QD
     Route: 048
  5. AMLODIPINE [Concomitant]
     Active Substance: AMLODIPINE BESYLATE
     Indication: Hypertension
     Dosage: 5 MILLIGRAM, QD
     Route: 048
  6. BEPOTASTINE BESYLATE [Concomitant]
     Active Substance: BEPOTASTINE BESYLATE
     Indication: Psoriasis
     Dosage: 10 MILLIGRAM/DOSE, APPROPRIATELY
     Route: 048
  7. LIMAPROST [Concomitant]
     Active Substance: LIMAPROST
     Dosage: 15 MICROGRAM/DOSE, TID
     Route: 048
  8. BETAMETHASONE\CALCIPOTRIENE [Concomitant]
     Active Substance: BETAMETHASONE\CALCIPOTRIENE
     Indication: Psoriasis
     Dosage: APPROPRIATELY, QD
     Route: 062
     Dates: start: 20230104

REACTIONS (2)
  - Breast cancer [Not Recovered/Not Resolved]
  - Purpura [Recovered/Resolved]

NARRATIVE: CASE EVENT DATE: 20230325
